FAERS Safety Report 6635874-7 (Version None)
Quarter: 2010Q1

REPORT INFORMATION
  Report Type: 
  Country: None (occurrence: None)
  Receive Date: 20100316
  Receipt Date: 20100309
  Transmission Date: 20100710
  Serious: Yes (Other)
  Sender: FDA-Public Use
  Company Number: AR-TEVA-226761ISR

PATIENT
  Sex: Male

DRUGS (4)
  1. METHOTREXATE [Suspect]
     Indication: RHEUMATOID ARTHRITIS
     Dates: start: 20071201, end: 20091124
  2. ABATACEPT [Suspect]
     Indication: RHEUMATOID ARTHRITIS
     Route: 058
     Dates: start: 20090421
  3. METHYLPREDNISOLONE [Concomitant]
     Indication: CANCER PAIN
     Dates: start: 20071201
  4. FOLIC ACID [Concomitant]
     Indication: PROSTATE CANCER
     Dates: start: 19950101

REACTIONS (1)
  - FIBROADENOMA OF BREAST [None]
